FAERS Safety Report 6085640-9 (Version None)
Quarter: 2009Q1

REPORT INFORMATION
  Report Type: 
  Country: None (occurrence: None)
  Receive Date: 20090217
  Receipt Date: 20090217
  Transmission Date: 20090719
  Serious: Yes (Other)
  Sender: FDA-Public Use
  Company Number: None

PATIENT
  Age: 41 Year
  Sex: Female
  Weight: 111.1313 kg

DRUGS (1)
  1. BUDEPRION 300 MG TEVA [Suspect]
     Dosage: 1 1 TIMES DAILY PO
     Route: 048
     Dates: start: 20081208, end: 20090111

REACTIONS (4)
  - DEPRESSION [None]
  - DRUG INEFFECTIVE [None]
  - MALAISE [None]
  - PRODUCT QUALITY ISSUE [None]
